FAERS Safety Report 7989982-9 (Version None)
Quarter: 2011Q4

REPORT INFORMATION
  Report Type: 
  Country: None (occurrence: None)
  Receive Date: 20111219
  Receipt Date: 20110207
  Transmission Date: 20120403
  Serious: No
  Sender: FDA-Public Use
  Company Number: US-ASTRAZENECA-2011SE06822

PATIENT
  Age: 75 Year
  Sex: Male

DRUGS (3)
  1. LIPITOR [Concomitant]
  2. CRESTOR [Suspect]
     Route: 048
  3. SIMVASTATIN [Concomitant]

REACTIONS (3)
  - MUSCLE SPASMS [None]
  - POLLAKIURIA [None]
  - FATIGUE [None]
